FAERS Safety Report 7528312-3 (Version None)
Quarter: 2011Q2

REPORT INFORMATION
  Report Type: 
  Country: None (occurrence: None)
  Receive Date: 20110607
  Receipt Date: 20110107
  Transmission Date: 20111010
  Serious: No
  Sender: FDA-Public Use
  Company Number: US-ASTRAZENECA-2011SE01444

PATIENT
  Age: 764 Month
  Sex: Male
  Weight: 102.1 kg

DRUGS (9)
  1. SINGULAIR [Concomitant]
  2. PRILOSEC [Suspect]
     Indication: DYSPEPSIA
     Route: 048
     Dates: start: 20000101
  3. GENERIC ALLEGRA [Concomitant]
  4. VITAMIN D [Concomitant]
  5. ALLOPURINOL [Concomitant]
  6. GENERIC ZPAK [Concomitant]
  7. HYTRIN [Concomitant]
  8. MUCINEX [Concomitant]
  9. FLONASE [Concomitant]

REACTIONS (4)
  - DRUG DOSE OMISSION [None]
  - GASTRITIS BACTERIAL [None]
  - DRUG INEFFECTIVE [None]
  - DYSPEPSIA [None]
